FAERS Safety Report 15967078 (Version 1)
Quarter: 2019Q1

REPORT INFORMATION
  Report Type: Spontaneous
  Country: OM (occurrence: OM)
  Receive Date: 20190215
  Receipt Date: 20190215
  Transmission Date: 20190418
  Serious: Yes (Other)
  Sender: FDA-Public Use
  Company Number: OM-SA-2019SA039217

PATIENT
  Sex: Male

DRUGS (1)
  1. CLOMIFENE CITRATE [Suspect]
     Active Substance: CLOMIPHENE

REACTIONS (1)
  - Cerebral thrombosis [Unknown]
